FAERS Safety Report 25144026 (Version 1)
Quarter: 2025Q2

REPORT INFORMATION
  Report Type: Spontaneous
  Country: US (occurrence: US)
  Receive Date: 20250401
  Receipt Date: 20250401
  Transmission Date: 20250716
  Serious: Yes (Other)
  Sender: CSL BEHRING
  Company Number: US-BEH-2025200385

PATIENT
  Sex: Female

DRUGS (3)
  1. HIZENTRA [Suspect]
     Active Substance: HUMAN IMMUNOGLOBULIN G
     Indication: Hypogammaglobulinaemia
     Dosage: 12 G, QW
     Route: 058
     Dates: start: 202501
  2. EPINEPHRINE [Concomitant]
     Active Substance: EPINEPHRINE
  3. ENBREL [Concomitant]
     Active Substance: ETANERCEPT

REACTIONS (6)
  - Drug ineffective [Unknown]
  - Peripheral swelling [Unknown]
  - Peripheral swelling [Unknown]
  - Joint swelling [Unknown]
  - Decreased appetite [Unknown]
  - Dyspnoea [Unknown]
